FAERS Safety Report 10085280 (Version 3)
Quarter: 2015Q3

REPORT INFORMATION
  Report Type: Spontaneous
  Country: US (occurrence: US)
  Receive Date: 20140417
  Receipt Date: 20150817
  Transmission Date: 20151125
  Serious: No
  Sender: FDA-Public Use
  Company Number: US-GILEAD-2014-0099984

PATIENT
  Age: 66 Year
  Sex: Male

DRUGS (4)
  1. LETAIRIS [Suspect]
     Active Substance: AMBRISENTAN
     Indication: CHRONIC OBSTRUCTIVE PULMONARY DISEASE
  2. XARELTO [Concomitant]
     Active Substance: RIVAROXABAN
  3. TYVASO [Concomitant]
     Active Substance: TREPROSTINIL
  4. LETAIRIS [Suspect]
     Active Substance: AMBRISENTAN
     Indication: PULMONARY FIBROSIS
     Dosage: 10 MG, QD
     Route: 065
     Dates: start: 20130306

REACTIONS (1)
  - Pruritus [Unknown]
